FAERS Safety Report 5445684-4 (Version None)
Quarter: 2007Q3

REPORT INFORMATION
  Report Type: 
  Country: None (occurrence: None)
  Receive Date: 20070904
  Receipt Date: 20070822
  Transmission Date: 20080115
  Serious: Yes (Other)
  Sender: FDA-Public Use
  Company Number: CHPA2007US08971

PATIENT
  Age: 68 Year
  Sex: Female
  Weight: 65.8 kg

DRUGS (3)
  1. BENEFIBER UNKNOWN (NCH) (UNKNOWN) UNKNOWN [Suspect]
     Dosage: USED FOR TWO YEARS
     Dates: start: 20050101
  2. BENEFIBER PLUS CALCIUM (NCH)(GUAR GUM, CALCIUM) POWDER [Suspect]
     Dosage: USED FOR LAST TWO MONTHS
     Dates: start: 20050101
  3. BENEFIBER W/WHEAT DEXTRIN (NCH)(WHEAT DEXTRIN) POWDER [Suspect]

REACTIONS (2)
  - BLOOD CALCIUM INCREASED [None]
  - WEIGHT DECREASED [None]
